FAERS Safety Report 23151395 (Version 1)
Quarter: 2023Q4

REPORT INFORMATION
  Report Type: Spontaneous
  Country: US (occurrence: US)
  Receive Date: 20231107
  Receipt Date: 20231107
  Transmission Date: 20240110
  Serious: No
  Sender: FDA-Public Use
  Company Number: US-OPELLA-2023OHG010895

PATIENT
  Sex: Female

DRUGS (1)
  1. ALOE VERA LEAF [Suspect]
     Active Substance: ALOE VERA LEAF
     Indication: Skin wrinkling

REACTIONS (2)
  - Drug ineffective [Unknown]
  - No adverse event [Unknown]
